FAERS Safety Report 7122254-3 (Version None)
Quarter: 2010Q4

REPORT INFORMATION
  Report Type: 
  Country: None (occurrence: None)
  Receive Date: 20101124
  Receipt Date: 20101116
  Transmission Date: 20110411
  Serious: Yes (Hospitalization)
  Sender: FDA-Public Use
  Company Number: US-AMGEN-USASP2010005518

PATIENT

DRUGS (4)
  1. ENBREL [Suspect]
     Indication: RHEUMATOID ARTHRITIS
     Dates: start: 19980501
  2. ENBREL [Suspect]
     Indication: PSORIASIS
  3. REMICADE [Concomitant]
     Indication: RHEUMATOID ARTHRITIS
  4. ORENCIA [Concomitant]

REACTIONS (8)
  - BURNING MOUTH SYNDROME [None]
  - CHOLECYSTITIS [None]
  - COLITIS [None]
  - DIVERTICULUM [None]
  - DRUG INEFFECTIVE [None]
  - HEPATIC STEATOSIS [None]
  - INFECTION [None]
  - PSORIASIS [None]
